FAERS Safety Report 7482429-0 (Version None)
Quarter: 2011Q2

REPORT INFORMATION
  Report Type: 
  Country: None (occurrence: None)
  Receive Date: 20110516
  Receipt Date: 20110511
  Transmission Date: 20111010
  Serious: Yes (Other)
  Sender: FDA-Public Use
  Company Number: CH-PFIZER INC-2011100855

PATIENT
  Age: 47 Year
  Sex: Female
  Weight: 53 kg

DRUGS (5)
  1. RITUXAN [Suspect]
     Indication: BURKITT'S LYMPHOMA
     Dosage: CYCLIC
     Dates: start: 20101218
  2. CYCLOPHOSPHAMIDE [Suspect]
     Indication: BURKITT'S LYMPHOMA
     Dosage: CYCLIC
     Dates: start: 20101218
  3. DOXORUBICIN HCL [Suspect]
     Indication: BURKITT'S LYMPHOMA
     Dosage: CYCLIC
     Dates: start: 20101218
  4. DEPOCYT [Suspect]
     Indication: BURKITT'S LYMPHOMA
     Dosage: 50 MG, CYCLIC
     Route: 037
     Dates: start: 20101218
  5. ONCOVIN [Suspect]
     Indication: BURKITT'S LYMPHOMA
     Dosage: CYCLIC
     Dates: start: 20101218

REACTIONS (1)
  - BACK PAIN [None]
